FAERS Safety Report 24164557 (Version 1)
Quarter: 2024Q3

REPORT INFORMATION
  Report Type: Spontaneous
  Country: US (occurrence: US)
  Receive Date: 20240801
  Receipt Date: 20240801
  Transmission Date: 20241017
  Serious: Yes (Hospitalization, Other)
  Sender: PRAXGEN PHARMACEUTICALS
  Company Number: US-PRAXGEN-2024PPLIT00045

PATIENT
  Age: 35 Year
  Sex: Male

DRUGS (1)
  1. SEVELAMER [Suspect]
     Active Substance: SEVELAMER
     Indication: End stage renal disease
     Route: 065

REACTIONS (1)
  - Ischaemic enteritis [Recovered/Resolved]
